FAERS Safety Report 6877453-2 (Version None)
Quarter: 2010Q3

REPORT INFORMATION
  Report Type: 
  Country: None (occurrence: None)
  Receive Date: 20100727
  Receipt Date: 20100126
  Transmission Date: 20110219
  Serious: Yes (Other)
  Sender: FDA-Public Use
  Company Number: US-ABBOTT-10P-163-0618505-00

PATIENT
  Sex: Female
  Weight: 77.18 kg

DRUGS (4)
  1. SYNTHROID [Suspect]
     Indication: AUTOIMMUNE THYROIDITIS
     Dosage: VARIOUS DOSES  CURRENTLY ON 625 MCG 2 DAYS AND 75 MCG 2 DAYS.
     Dates: start: 20000101
  2. ACTOS [Concomitant]
     Indication: DIABETES MELLITUS
  3. JANUVIA [Concomitant]
     Indication: DIABETES MELLITUS
  4. FEMARA [Concomitant]
     Indication: BLOOD OESTROGEN INCREASED

REACTIONS (6)
  - BREAST CANCER [None]
  - DIZZINESS [None]
  - FEELING ABNORMAL [None]
  - GASTRIC DISORDER [None]
  - PAIN [None]
  - POOR QUALITY SLEEP [None]
